FAERS Safety Report 5016325-5 (Version None)
Quarter: 2006Q2

REPORT INFORMATION
  Report Type: 
  Country: None (occurrence: None)
  Receive Date: 20060414
  Receipt Date: 20060125
  Transmission Date: 20061013
  Serious: No
  Sender: FDA-Public Use
  Company Number: 2006SP000443

PATIENT
  Age: 42 Year
  Sex: Female
  Weight: 50.8029 kg

DRUGS (4)
  1. LUNESTA [Suspect]
     Indication: INSOMNIA
     Dosage: 2 MG;1X;ORAL
     Route: 048
     Dates: start: 20060124, end: 20060124
  2. NASONEX [Concomitant]
  3. ULTRAM [Concomitant]
  4. ATIVAN [Concomitant]

REACTIONS (10)
  - DRUG INEFFECTIVE [None]
  - EYE SWELLING [None]
  - HEADACHE [None]
  - INFLUENZA LIKE ILLNESS [None]
  - MIDDLE INSOMNIA [None]
  - NIGHTMARE [None]
  - PAIN [None]
  - PHARYNGOLARYNGEAL PAIN [None]
  - PRURITUS [None]
  - SKIN WARM [None]
